FAERS Safety Report 6283957-6 (Version None)
Quarter: 2009Q3

REPORT INFORMATION
  Report Type: 
  Country: None (occurrence: None)
  Receive Date: 20090723
  Receipt Date: 20090723
  Transmission Date: 20100115
  Serious: Yes (Disabling)
  Sender: FDA-Public Use
  Company Number: None

PATIENT
  Age: 43 Year
  Sex: Female
  Weight: 113.3993 kg

DRUGS (1)
  1. BECONASE AQ [Suspect]
     Indication: NASAL POLYPS
     Dosage: 2 SPRAYS 2X DAY 2X DAY NOSE
     Route: 045
     Dates: start: 20090126, end: 20090305

REACTIONS (3)
  - DEAFNESS UNILATERAL [None]
  - EAR DISCOMFORT [None]
  - HYPOACUSIS [None]
